FAERS Safety Report 24140585 (Version 1)
Quarter: 2024Q3

REPORT INFORMATION
  Report Type: Spontaneous
  Country: GB (occurrence: GB)
  Receive Date: 20240726
  Receipt Date: 20240726
  Transmission Date: 20241016
  Serious: Yes (Other)
  Sender: AUROBINDO
  Company Number: GB-AUROBINDO-AUR-APL-2024-036701

PATIENT
  Age: 46 Year
  Sex: Male

DRUGS (3)
  1. AMOXICILLIN [Suspect]
     Active Substance: AMOXICILLIN
     Indication: Encephalitis
     Dosage: 2 GRAM, 4-HOURLY
     Route: 065
  2. GENTAMICIN [Suspect]
     Active Substance: GENTAMICIN
     Indication: Encephalitis
     Dosage: UNK
     Route: 065
  3. COTRIMOXAZOLE [Suspect]
     Active Substance: SULFAMETHOXAZOLE\TRIMETHOPRIM
     Indication: Encephalitis
     Dosage: UNK
     Route: 065

REACTIONS (1)
  - Drug ineffective [Unknown]
